FAERS Safety Report 15684205 (Version 1)
Quarter: 2018Q4

REPORT INFORMATION
  Report Type: Spontaneous
  Country: US (occurrence: US)
  Receive Date: 20181204
  Receipt Date: 20181204
  Transmission Date: 20190205
  Serious: Yes (Other)
  Sender: FDA-Public Use
  Company Number: US-CORDEN PHARMA LATINA S.P.A.-US-2018COR000146

PATIENT
  Age: 51 Year
  Sex: Female

DRUGS (5)
  1. ETOPOSIDE. [Suspect]
     Active Substance: ETOPOSIDE
     Indication: LUNG ADENOCARCINOMA STAGE III
     Dosage: CYCLE 1 (50 MG/M2 DAILY ON DAYS 1 TO 5 AND DAYS 29 TO 33)
     Route: 065
  2. ETOPOSIDE. [Suspect]
     Active Substance: ETOPOSIDE
     Dosage: CYCLE 2, UNK
     Route: 065
  3. CISPLATIN. [Suspect]
     Active Substance: CISPLATIN
     Dosage: CYCLE 1, UNK
     Route: 042
  4. CISPLATIN. [Suspect]
     Active Substance: CISPLATIN
     Indication: LUNG ADENOCARCINOMA STAGE III
     Dosage: CYCLE 1 (50 MG/M2 ON DAYS 1, 8, 29, AND 36)
     Route: 042
  5. RADIOTHERAPY [Suspect]
     Active Substance: RADIATION THERAPY
     Indication: LUNG ADENOCARCINOMA STAGE III
     Dosage: 60 GY OF 30 FRACTIONS
     Route: 065

REACTIONS (1)
  - Superior vena cava syndrome [Unknown]
